FAERS Safety Report 11713616 (Version 1)
Quarter: 2015Q4

REPORT INFORMATION
  Report Type: Spontaneous
  Country: US (occurrence: None)
  Receive Date: 20151106
  Receipt Date: 20151106
  Transmission Date: 20160304
  Serious: Yes (Other)
  Sender: FDA-Public Use
  Company Number: None

PATIENT
  Age: 68 Year
  Sex: Male
  Weight: 107.96 kg

DRUGS (5)
  1. POTASSIUM CL ER [Concomitant]
  2. VITAMIN D3 [Concomitant]
     Active Substance: CHOLECALCIFEROL
  3. XARELTO [Concomitant]
     Active Substance: RIVAROXABAN
  4. LOW DOSE 81MG ECOTRIN [Concomitant]
  5. SOTALOL (DISP. FOR BETAPACE) APOTEX [Suspect]
     Active Substance: SOTALOL
     Indication: ATRIAL FIBRILLATION
     Route: 048
     Dates: start: 20150727, end: 20150811

REACTIONS (3)
  - Cardiac flutter [None]
  - Heart rate irregular [None]
  - Product substitution issue [None]

NARRATIVE: CASE EVENT DATE: 20150727
